FAERS Safety Report 5227416-8 (Version None)
Quarter: 2007Q1

REPORT INFORMATION
  Report Type: 
  Country: None (occurrence: None)
  Receive Date: 20070202
  Receipt Date: 20070122
  Transmission Date: 20070707
  Serious: Yes (Hospitalization)
  Sender: FDA-Public Use
  Company Number: PHRM2007FR00622

PATIENT
  Age: 57 Year
  Sex: Female

DRUGS (6)
  1. TENORMIN [Concomitant]
     Dosage: 25 MG PER DAY
     Route: 048
  2. OMEPRAZOLE [Suspect]
     Dosage: 1 DF PER DAY
  3. DI-ANTALVIC [Concomitant]
     Dosage: 4 DF PER DAY
     Route: 048
  4. ZOMETA [Suspect]
     Indication: MULTIPLE MYELOMA
     Dosage: 4 MG, QMO
     Route: 042
     Dates: start: 20060828, end: 20061025
  5. REVLIMIB [Concomitant]
     Dates: end: 20061023
  6. REVLIMIB [Concomitant]
     Dates: start: 20061030

REACTIONS (3)
  - PRURITUS [None]
  - RASH PAPULAR [None]
  - TOXIC SKIN ERUPTION [None]
